FAERS Safety Report 25050086 (Version 1)
Quarter: 2025Q1

REPORT INFORMATION
  Report Type: Spontaneous
  Country: FR (occurrence: FR)
  Receive Date: 20250307
  Receipt Date: 20250307
  Transmission Date: 20250409
  Serious: Yes (Other)
  Sender: AUROBINDO
  Company Number: FR-AFSSAPS-TO2025000064

PATIENT
  Age: 85 Year
  Sex: Female
  Weight: 56 kg

DRUGS (6)
  1. AMOXICILLIN [Suspect]
     Active Substance: AMOXICILLIN
     Indication: Osteitis
     Dosage: 3 GRAM, ONCE A DAY (1G/125MG SNC)
     Route: 048
     Dates: start: 20241023, end: 20250101
  2. LANSOPRAZOLE [Suspect]
     Active Substance: LANSOPRAZOLE
     Indication: Abdominal pain upper
     Dosage: 15 MILLIGRAM, ONCE A DAY
     Route: 048
     Dates: start: 20241214
  3. VORICONAZOLE [Suspect]
     Active Substance: VORICONAZOLE
     Indication: Osteitis
     Dosage: 400 MILLIGRAM, ONCE A DAY (200 MG 2/DAY)
     Route: 048
     Dates: start: 20241030
  4. CLAVULANIC ACID [Suspect]
     Active Substance: CLAVULANIC ACID
     Indication: Osteitis
     Dosage: 375 MILLIGRAM, ONCE A DAY (1G/125MG SNC)
     Route: 048
     Dates: start: 20241023, end: 20250101
  5. SULFAMETHOXAZOLE [Suspect]
     Active Substance: SULFAMETHOXAZOLE
     Indication: Osteitis
     Dosage: 800 MILLIGRAM, ONCE A DAY
     Route: 048
     Dates: start: 20241015
  6. TRIMETHOPRIM [Suspect]
     Active Substance: TRIMETHOPRIM
     Indication: Osteitis
     Dosage: 800 MILLIGRAM, ONCE A DAY
     Route: 048
     Dates: start: 20241015

REACTIONS (1)
  - Cholestasis [Not Recovered/Not Resolved]

NARRATIVE: CASE EVENT DATE: 20241231
